FAERS Safety Report 9252223 (Version 1)
Quarter: 2013Q1

REPORT INFORMATION
  Report Type: Spontaneous
  Country: US (occurrence: None)
  Receive Date: 20130305
  Receipt Date: 20130305
  Transmission Date: 20140127
  Serious: Yes (Other)
  Sender: FDA-Public Use
  Company Number: 163-21880-12083321

PATIENT
  Age: 56 Year
  Sex: Male
  Weight: 89.81 kg

DRUGS (9)
  1. REVLIMID (LENALIDOMIDE) [Suspect]
     Indication: PLASMA CELL MYELOMA
     Dosage: 06/07/2010 - ONGOING, CAPSULE, 15 MG, 28 IN 28 D, PO
  2. ASPIRIN (ACETYLSALICYLIC ACID) [Concomitant]
  3. IBUPROFEN (IBUPROFEN) [Concomitant]
  4. LEVETIRACETAM (LEVETIRACETAM) [Concomitant]
  5. LISINOPRIL (LISINOPRIL) [Concomitant]
  6. VITAMINS [Concomitant]
  7. OMEPRAZOLE (OMEPRAZOLE) [Concomitant]
  8. TYLENOL (PARACETAMOL) [Concomitant]
  9. ZOFRAN (ONDANSETRON HYDROCHLORIDE) [Concomitant]

REACTIONS (3)
  - Muscle spasms [None]
  - Blood potassium decreased [None]
  - Blood magnesium decreased [None]
